FAERS Safety Report 5014904-2 (Version None)
Quarter: 2006Q2

REPORT INFORMATION
  Report Type: 
  Country: None (occurrence: None)
  Receive Date: 20060414
  Receipt Date: 20060125
  Transmission Date: 20061013
  Serious: No
  Sender: FDA-Public Use
  Company Number: 2005SP003134

PATIENT
  Age: 64 Year
  Sex: Female
  Weight: 53.0709 kg

DRUGS (2)
  1. LUNESTA [Suspect]
     Indication: INSOMNIA
     Dosage: 2 MG;1X;ORAL
     Route: 048
     Dates: start: 20050918, end: 20050918
  2. AMBIEN [Concomitant]

REACTIONS (5)
  - AGITATION [None]
  - NERVOUSNESS [None]
  - PARADOXICAL DRUG REACTION [None]
  - RESTLESS LEGS SYNDROME [None]
  - TREMOR [None]
